FAERS Safety Report 11743589 (Version 1)
Quarter: 2015Q4

REPORT INFORMATION
  Report Type: Spontaneous
  Country: PT (occurrence: PT)
  Receive Date: 20151116
  Receipt Date: 20151116
  Transmission Date: 20160304
  Serious: Yes (Other)
  Sender: FDA-Public Use
  Company Number: PT-GLAXOSMITHKLINE-PT2015GSK161022

PATIENT
  Age: 3 Year
  Sex: Male

DRUGS (2)
  1. FLUTICASONE FUROATE [Suspect]
     Active Substance: FLUTICASONE FUROATE
     Dosage: 220
     Route: 055
  2. BETAMETHASONE. [Suspect]
     Active Substance: BETAMETHASONE
     Dosage: 0.17 MG/KG, UNK

REACTIONS (6)
  - Oedema [Unknown]
  - Hypothalamic pituitary adrenal axis suppression [Unknown]
  - Hypertrichosis [Unknown]
  - Blood cortisol increased [Unknown]
  - Hypertension [Unknown]
  - Cushing^s syndrome [Recovered/Resolved]
